FAERS Safety Report 5263821-1 (Version None)
Quarter: 2007Q1

REPORT INFORMATION
  Report Type: 
  Country: None (occurrence: None)
  Receive Date: 20070313
  Receipt Date: 20070302
  Transmission Date: 20070707
  Serious: Yes (Other)
  Sender: FDA-Public Use
  Company Number: HK-GLAXOSMITHKLINE-B0440276A

PATIENT
  Age: 58 Year
  Sex: Male

DRUGS (4)
  1. AVANDIA [Suspect]
     Route: 048
  2. CHINESE MEDICINE [Concomitant]
     Indication: DRUG USE FOR UNKNOWN INDICATION
     Route: 065
  3. CARTIA XT [Concomitant]
  4. UNKNOWN DRUG [Concomitant]

REACTIONS (4)
  - DIZZINESS [None]
  - FLUID RETENTION [None]
  - HYPOGLYCAEMIA [None]
  - TREMOR [None]
